FAERS Safety Report 11239698 (Version 2)
Quarter: 2015Q3

REPORT INFORMATION
  Report Type: Spontaneous
  Country: GB (occurrence: GB)
  Receive Date: 20150706
  Receipt Date: 20150717
  Transmission Date: 20151125
  Serious: Yes (Other)
  Sender: FDA-Public Use
  Company Number: GB-PFIZER INC-2015215934

PATIENT
  Age: 61 Year
  Sex: Female

DRUGS (5)
  1. LACRI-LUBE [Concomitant]
     Dosage: UNK
  2. EVEROLIMUS [Suspect]
     Active Substance: EVEROLIMUS
     Dosage: UNK
     Route: 048
  3. EXEMESTANE. [Suspect]
     Active Substance: EXEMESTANE
     Dosage: UNK
     Route: 048
  4. CHLORAMPHENICOL [Concomitant]
     Active Substance: CHLORAMPHENICOL
     Dosage: UNK
  5. FUSIDIC ACID [Concomitant]
     Active Substance: FUSIDIC ACID
     Dosage: UNK

REACTIONS (5)
  - Vitritis [Not Recovered/Not Resolved]
  - Corneal disorder [Not Recovered/Not Resolved]
  - Iridocyclitis [Not Recovered/Not Resolved]
  - Iris adhesions [Recovering/Resolving]
  - Corneal epithelial microcysts [Not Recovered/Not Resolved]

NARRATIVE: CASE EVENT DATE: 20150614
